FAERS Safety Report 8128370-1 (Version None)
Quarter: 2012Q1

REPORT INFORMATION
  Report Type: 
  Country: None (occurrence: None)
  Receive Date: 20120210
  Receipt Date: 20120206
  Transmission Date: 20120608
  Serious: Yes (Death)
  Sender: FDA-Public Use
  Company Number: US-US-EMD SERONO, INC.-7109902

PATIENT
  Sex: Male

DRUGS (15)
  1. OMEPRAZOLE [Concomitant]
     Indication: DYSPEPSIA
     Dates: start: 20111229
  2. PRAVASTATIN [Concomitant]
  3. LORTAB [Concomitant]
     Indication: PAIN
  4. ATENOLOL [Concomitant]
     Indication: HYPERTENSION
  5. NEURONTIN [Concomitant]
     Indication: NEUROPATHY PERIPHERAL
  6. SINGULAIR [Concomitant]
  7. FORTEO [Concomitant]
     Indication: OSTEOPOROSIS
  8. VITAMIN D [Concomitant]
  9. EGRIFTA [Suspect]
     Indication: LIPODYSTROPHY ACQUIRED
     Route: 058
     Dates: start: 20110101
  10. KALETRA [Concomitant]
     Indication: HIV INFECTION
     Dosage: 50/200 MG
  11. DIOVAN [Concomitant]
  12. AMBIEN [Concomitant]
     Indication: INSOMNIA
  13. EPZICOM [Concomitant]
     Indication: HIV INFECTION
  14. AMITRIPTYLINE HCL [Concomitant]
  15. ACYCLOVIR [Concomitant]
     Indication: ORAL HERPES

REACTIONS (6)
  - VITAMIN D DECREASED [None]
  - HEADACHE [None]
  - BLOOD CHOLESTEROL INCREASED [None]
  - CHEST PAIN [None]
  - DYSPEPSIA [None]
  - DEATH [None]
